FAERS Safety Report 9374615 (Version 1)
Quarter: 2013Q2

REPORT INFORMATION
  Report Type: Spontaneous
  Country: US (occurrence: US)
  Receive Date: 20130628
  Receipt Date: 20130628
  Transmission Date: 20140414
  Serious: No
  Sender: FDA-Public Use
  Company Number: US-BAYER-2013-079345

PATIENT
  Age: 26 Year
  Sex: Male
  Weight: 58.96 kg

DRUGS (2)
  1. BAYER EXTRA STRENGTH BACK + BODY PAIN [Suspect]
     Dosage: 2 DF, TID
     Route: 048
     Dates: start: 201306, end: 20130617
  2. ALEVE CAPLET [Suspect]
     Indication: BACK PAIN
     Dosage: 2 DF, QD
     Route: 048

REACTIONS (2)
  - Drug ineffective [None]
  - Drug ineffective [None]
